FAERS Safety Report 4548555-0 (Version None)
Quarter: 2005Q1

REPORT INFORMATION
  Report Type: 
  Country: None (occurrence: None)
  Receive Date: 20050106
  Receipt Date: 20041227
  Transmission Date: 20050727
  Serious: Yes (Other)
  Sender: FDA-Public Use
  Company Number: 200416260BCC

PATIENT
  Age: 67 Year
  Sex: Female

DRUGS (3)
  1. ALEVE [Suspect]
     Indication: BACK PAIN
     Dosage: SEE IMAGE
     Route: 048
  2. CELEBREX [Concomitant]
  3. VIOXX [Concomitant]

REACTIONS (3)
  - FALL [None]
  - GAIT DISTURBANCE [None]
  - PAIN [None]
